FAERS Safety Report 8738561 (Version 2)
Quarter: 2012Q4

REPORT INFORMATION
  Report Type: 
  Country: US (occurrence: US)
  Receive Date: 20120823
  Receipt Date: 20121017
  Transmission Date: 20130627
  Serious: Yes (Death, Hospitalization)
  Sender: FDA-Public Use
  Company Number: PHEH2012US016431

PATIENT
  Age: 57 Year
  Sex: Male
  Weight: 38.6 kg

DRUGS (1)
  1. MYFORTIC [Suspect]
     Dosage: 2 DF, BID

REACTIONS (4)
  - Cardiogenic shock [Fatal]
  - Sepsis [Fatal]
  - Malnutrition [Unknown]
  - Pneumonia [Unknown]
